FAERS Safety Report 7889438-8 (Version None)
Quarter: 2011Q4

REPORT INFORMATION
  Report Type: 
  Country: None (occurrence: None)
  Receive Date: 20111103
  Receipt Date: 20111024
  Transmission Date: 20120403
  Serious: Yes (Hospitalization)
  Sender: FDA-Public Use
  Company Number: JP-PFIZER INC-2011242447

PATIENT
  Age: 62 Year
  Sex: Male
  Weight: 71 kg

DRUGS (18)
  1. FLUOROURACIL [Suspect]
     Dosage: 4488 MG (2400 MG/M2)
     Route: 041
     Dates: start: 20110902
  2. CELECOXIB [Concomitant]
     Indication: PAIN
     Dosage: 100 MG, 2X/DAY
     Route: 048
  3. PURSENNID [Concomitant]
     Indication: CONSTIPATION
     Dosage: 1 DF, AS NEEDED
     Route: 048
  4. TENORMIN [Concomitant]
     Indication: HYPERTENSION
     Dosage: 50 MG, UNK
     Route: 048
  5. ALLOPURINOL [Concomitant]
     Indication: HYPERTENSION
     Dosage: 100 MG, UNK
     Route: 048
     Dates: start: 20110918
  6. GRAN [Concomitant]
     Dosage: UNK
     Route: 042
     Dates: start: 20110912, end: 20110915
  7. CEFTAZIDIME [Concomitant]
     Dosage: UNK
     Route: 042
     Dates: start: 20110912, end: 20110920
  8. LANSOPRAZOLE [Concomitant]
     Indication: GASTRITIS
     Dosage: 60 MG, UNK
     Route: 042
     Dates: start: 20110918
  9. OXYCONTIN [Concomitant]
     Indication: ABDOMINAL PAIN UPPER
     Dosage: UNK
     Route: 048
     Dates: start: 20110910
  10. CAMPTOSAR [Suspect]
     Indication: PANCREATIC CARCINOMA
     Dosage: 337 MG (180 MG/M2)
     Route: 041
     Dates: start: 20110902
  11. ADALAT [Concomitant]
     Indication: HYPERTENSION
     Dosage: 40 MG, UNK
     Route: 048
  12. FENTANYL [Concomitant]
     Indication: PAIN
     Dosage: 6 MG, UNK
     Route: 042
     Dates: start: 20110914
  13. LEVOLEUCOVORIN CALCIUM [Suspect]
     Indication: PANCREATIC CARCINOMA
     Dosage: 374 MG (200 MG/M2)
     Route: 041
     Dates: start: 20110902
  14. FLUOROURACIL [Suspect]
     Indication: PANCREATIC CARCINOMA
     Dosage: 748 MG (400 MG/M2)
     Route: 040
     Dates: start: 20110902
  15. ELNEOPA NO.2 [Concomitant]
     Indication: NUTRITIONAL SUPPORT
     Dosage: 2000 ML, UNK
     Route: 041
     Dates: start: 20110918
  16. OXALIPLATIN [Suspect]
     Indication: PANCREATIC CARCINOMA
     Dosage: 159 MG (85 MG/M2)
     Route: 041
     Dates: start: 20110902
  17. CANDESARTAN CILEXETIL [Concomitant]
     Indication: HYPERTENSION
     Dosage: 40 MG, UNK
     Route: 048
     Dates: start: 20110915
  18. ATROPINE SULFATE [Concomitant]
     Indication: CHOLINERGIC SYNDROME
     Dosage: UNK
     Route: 042

REACTIONS (1)
  - GASTRIC ULCER [None]
